FAERS Safety Report 8586245-8 (Version None)
Quarter: 2012Q3

REPORT INFORMATION
  Report Type: 
  Country: None (occurrence: None)
  Receive Date: 20120810
  Receipt Date: 19900521
  Transmission Date: 20120928
  Serious: Yes (Death, Hospitalization)
  Sender: FDA-Public Use
  Company Number: US-ROCHE-1097909

PATIENT
  Sex: Male

DRUGS (1)
  1. ACTIVASE [Suspect]
     Indication: PRODUCT USED FOR UNKNOWN INDICATION
     Dosage: 10 MG
     Route: 040

REACTIONS (12)
  - PAIN [None]
  - CONVULSION [None]
  - DEATH [None]
  - DYSPNOEA [None]
  - SOMNOLENCE [None]
  - SPEECH DISORDER [None]
  - MYDRIASIS [None]
  - TACHYCARDIA [None]
  - NAUSEA [None]
  - RESTLESSNESS [None]
  - VOMITING [None]
  - LETHARGY [None]
